FAERS Safety Report 17881709 (Version 2)
Quarter: 2020Q2

REPORT INFORMATION
  Report Type: Report from Study
  Country: US (occurrence: US)
  Receive Date: 20200610
  Receipt Date: 20200616
  Transmission Date: 20200714
  Serious: Yes (Other)
  Sender: FDA-Public Use
  Company Number: US-ROCHE-2618516

PATIENT
  Sex: Male

DRUGS (1)
  1. OCREVUS [Suspect]
     Active Substance: OCRELIZUMAB
     Indication: MULTIPLE SCLEROSIS
     Dosage: INJECT 600MG INTRAVENOUSLY EVERY 6 MONTH(S)
     Route: 042

REACTIONS (3)
  - Multiple sclerosis [Unknown]
  - Intentional product misuse [Unknown]
  - Off label use [Unknown]
